FAERS Safety Report 19175227 (Version 2)
Quarter: 2021Q2

REPORT INFORMATION
  Report Type: Spontaneous
  Country: US (occurrence: US)
  Receive Date: 20210424
  Receipt Date: 20210519
  Transmission Date: 20210717
  Serious: No
  Sender: FDA-Public Use
  Company Number: US-ASTRAZENECA-2021A263087

PATIENT
  Sex: Male
  Weight: 63.5 kg

DRUGS (4)
  1. FASENRA [Suspect]
     Active Substance: BENRALIZUMAB
     Indication: EOSINOPHIL COUNT
     Route: 058
     Dates: start: 202102
  2. ATORVASTATIN [Concomitant]
     Active Substance: ATORVASTATIN
     Indication: BLOOD CHOLESTEROL ABNORMAL
  3. B12 SHOTS [Concomitant]
     Active Substance: CYANOCOBALAMIN
  4. FASENRA [Suspect]
     Active Substance: BENRALIZUMAB
     Indication: COUGH
     Route: 058
     Dates: start: 202102

REACTIONS (1)
  - Weight decreased [Unknown]
